FAERS Safety Report 4598060-0 (Version None)
Quarter: 2005Q1

REPORT INFORMATION
  Report Type: 
  Country: None (occurrence: None)
  Receive Date: 20050304
  Receipt Date: 20041129
  Transmission Date: 20050727
  Serious: Yes (Other)
  Sender: FDA-Public Use
  Company Number: US-JNJFOC-20041106659

PATIENT
  Sex: Female
  Weight: 86.18 kg

DRUGS (12)
  1. REMICADE [Suspect]
     Route: 042
  2. REMICADE [Suspect]
     Route: 042
  3. REMICADE [Suspect]
     Indication: RHEUMATOID ARTHRITIS
     Route: 042
  4. METHOTREXATE [Concomitant]
     Indication: RHEUMATOID ARTHRITIS
  5. PREDNISONE [Concomitant]
     Indication: RHEUMATOID ARTHRITIS
  6. TOPRIL [Concomitant]
  7. PREMARIN [Concomitant]
     Indication: HORMONE REPLACEMENT THERAPY
  8. NEXIUM [Concomitant]
  9. LORAZEPAM [Concomitant]
     Indication: SLEEP DISORDER THERAPY
  10. FOLIC ACID [Concomitant]
     Indication: NUTRITIONAL SUPPORT
  11. PROVIGIL [Concomitant]
  12. MEPERIDINE HCL [Concomitant]
     Indication: PAIN

REACTIONS (8)
  - CHEST DISCOMFORT [None]
  - DYSPNOEA [None]
  - ERYTHEMA [None]
  - INFUSION RELATED REACTION [None]
  - MEDICATION ERROR [None]
  - NAUSEA [None]
  - RASH [None]
  - THROAT TIGHTNESS [None]
